FAERS Safety Report 13224590 (Version 1)
Quarter: 2017Q1

REPORT INFORMATION
  Report Type: Spontaneous
  Country: US (occurrence: US)
  Receive Date: 20170213
  Receipt Date: 20170213
  Transmission Date: 20170428
  Serious: Yes (Other)
  Sender: FDA-Public Use
  Company Number: US-BEH-2017077960

PATIENT
  Age: 55 Year
  Sex: Male
  Weight: 128.12 kg

DRUGS (36)
  1. AVAPRO [Concomitant]
     Active Substance: IRBESARTAN
  2. GLYBURIDE AND METFORMIN HCL [Concomitant]
  3. LEXAPRO [Concomitant]
     Active Substance: ESCITALOPRAM OXALATE
  4. CYCLOBENZAPRINE [Concomitant]
     Active Substance: CYCLOBENZAPRINE
  5. TEGRETOL [Concomitant]
     Active Substance: CARBAMAZEPINE
  6. LANTUS [Concomitant]
     Active Substance: INSULIN GLARGINE
  7. HIZENTRA [Suspect]
     Active Substance: HUMAN IMMUNOGLOBULIN G
     Dosage: UNK
     Route: 058
  8. CARBAMAZEPINE. [Concomitant]
     Active Substance: CARBAMAZEPINE
  9. IMITREX [Concomitant]
     Active Substance: SUMATRIPTAN SUCCINATE
  10. SPIRONOLACTONE. [Concomitant]
     Active Substance: SPIRONOLACTONE
  11. DILTIAZEM. [Concomitant]
     Active Substance: DILTIAZEM
  12. ZAFIRLUKAST. [Concomitant]
     Active Substance: ZAFIRLUKAST
  13. FENOFIBRATE. [Concomitant]
     Active Substance: FENOFIBRATE
  14. MOBIC [Concomitant]
     Active Substance: MELOXICAM
  15. ADVAIR HFA [Concomitant]
     Active Substance: FLUTICASONE PROPIONATE\SALMETEROL XINAFOATE
  16. HIZENTRA [Suspect]
     Active Substance: HUMAN IMMUNOGLOBULIN G
     Dosage: UNK
     Route: 058
  17. LMX                                /00033401/ [Concomitant]
  18. LIPITOR [Concomitant]
     Active Substance: ATORVASTATIN CALCIUM
  19. TYLENOL WITH CODEINE [Concomitant]
     Active Substance: ACETAMINOPHEN\CODEINE PHOSPHATE
  20. FISH OIL [Concomitant]
     Active Substance: FISH OIL
  21. COUMADIN [Concomitant]
     Active Substance: WARFARIN SODIUM
  22. HIZENTRA [Suspect]
     Active Substance: HUMAN IMMUNOGLOBULIN G
     Indication: IMMUNODEFICIENCY COMMON VARIABLE
     Dosage: 15 G, QW
     Route: 058
     Dates: start: 20100727
  23. EPIPEN [Concomitant]
     Active Substance: EPINEPHRINE
  24. NOVOLOG [Concomitant]
     Active Substance: INSULIN ASPART
  25. OMEPRAZOLE. [Concomitant]
     Active Substance: OMEPRAZOLE
  26. VITAMIN C [Concomitant]
     Active Substance: ASCORBIC ACID
  27. NORCO [Concomitant]
     Active Substance: ACETAMINOPHEN\HYDROCODONE BITARTRATE
  28. HUMULIN NOS [Concomitant]
     Active Substance: INSULIN HUMAN
  29. XOPENEX [Concomitant]
     Active Substance: LEVALBUTEROL HYDROCHLORIDE
  30. DIPHENHYDRAMINE. [Concomitant]
     Active Substance: DIPHENHYDRAMINE
  31. RANITIDINE. [Concomitant]
     Active Substance: RANITIDINE
  32. METOPROLOL. [Concomitant]
     Active Substance: METOPROLOL
  33. TRICOR                             /00090101/ [Concomitant]
     Active Substance: ADENOSINE
  34. MULTIPLE VITAMINS [Concomitant]
     Active Substance: VITAMINS
  35. COLACE [Concomitant]
     Active Substance: DOCUSATE SODIUM
  36. LORAZEPAM. [Concomitant]
     Active Substance: LORAZEPAM

REACTIONS (1)
  - Vitreous haemorrhage [Unknown]

NARRATIVE: CASE EVENT DATE: 201702
